FAERS Safety Report 15270559 (Version 1)
Quarter: 2018Q3

REPORT INFORMATION
  Report Type: Spontaneous
  Country: US (occurrence: US)
  Receive Date: 20180813
  Receipt Date: 20180813
  Transmission Date: 20181010
  Serious: No
  Sender: FDA-Public Use
  Company Number: US-ASTRAZENECA-2018SE98276

PATIENT
  Age: 688 Month
  Sex: Female
  Weight: 98.9 kg

DRUGS (2)
  1. FASENRA [Suspect]
     Active Substance: BENRALIZUMAB
     Indication: ASTHMA
     Route: 058
     Dates: start: 20180720
  2. BENADRYL [Concomitant]
     Active Substance: DIPHENHYDRAMINE HYDROCHLORIDE

REACTIONS (4)
  - Nausea [Unknown]
  - Malaise [Unknown]
  - Hypoaesthesia oral [Unknown]
  - Vomiting [Unknown]

NARRATIVE: CASE EVENT DATE: 201807
